FAERS Safety Report 6787955-5 (Version None)
Quarter: 2010Q2

REPORT INFORMATION
  Report Type: 
  Country: None (occurrence: None)
  Receive Date: 20100623
  Receipt Date: 20071231
  Transmission Date: 20101027
  Serious: No
  Sender: FDA-Public Use
  Company Number: US-PFIZER INC-2008000469

PATIENT
  Sex: Male

DRUGS (2)
  1. XALATAN [Suspect]
     Dosage: 1 DROP PER EYE
     Route: 047
  2. XAL-EASE [Suspect]

REACTIONS (3)
  - ACCIDENTAL OVERDOSE [None]
  - MEDICAL DEVICE COMPLICATION [None]
  - NO ADVERSE EVENT [None]
